FAERS Safety Report 9191099 (Version 1)
Quarter: 2013Q1

REPORT INFORMATION
  Report Type: Spontaneous
  Country: DE (occurrence: DE)
  Receive Date: 20130326
  Receipt Date: 20130326
  Transmission Date: 20140127
  Serious: Yes (Other)
  Sender: FDA-Public Use
  Company Number: DE-WATSON-2013-04273

PATIENT
  Age: 22 Year
  Sex: Male

DRUGS (4)
  1. TESTOSTERONE [Suspect]
     Indication: MUSCLE BUILDING THERAPY
     Dosage: UNK, UNKNOWN
     Route: 065
  2. TRENBOLONE [Suspect]
     Indication: MUSCLE BUILDING THERAPY
     Dosage: UNK, UNKNOWN
     Route: 065
  3. DROSTANOLONE PROPIONATE [Suspect]
     Indication: MUSCLE BUILDING THERAPY
     Dosage: UNK, UNKNOWN
     Route: 065
  4. METHANDROSTENOLONE [Suspect]
     Indication: MUSCLE BUILDING THERAPY
     Dosage: UNK, UNKNOWN
     Route: 065

REACTIONS (2)
  - Acne fulminans [Recovered/Resolved]
  - Drug abuse [Recovered/Resolved]
